FAERS Safety Report 8924009 (Version 2)
Quarter: 2013Q1

REPORT INFORMATION
  Report Type: Spontaneous
  Country: US (occurrence: US)
  Receive Date: 20121126
  Receipt Date: 20130213
  Transmission Date: 20140127
  Serious: Yes (Hospitalization)
  Sender: FDA-Public Use
  Company Number: US-ASTRAZENECA-2012SE87346

PATIENT
  Age: 19 Year
  Sex: Male

DRUGS (10)
  1. SEROQUEL [Suspect]
     Route: 048
     Dates: end: 201210
  2. KLONOPIN [Suspect]
     Route: 065
     Dates: end: 201210
  3. ZOLOFT [Suspect]
     Route: 065
     Dates: end: 201210
  4. TRAZODONE [Suspect]
     Route: 065
     Dates: end: 201210
  5. NEURONTIN [Concomitant]
  6. NEURONTIN [Concomitant]
  7. PAXIL [Concomitant]
  8. LAMICTAL [Concomitant]
  9. LATUDA [Concomitant]
  10. TEMAZEPAM [Concomitant]
     Dosage: AT BEDTIME

REACTIONS (2)
  - Crohn^s disease [Unknown]
  - Drug ineffective [Unknown]
